FAERS Safety Report 4292570-1 (Version None)
Quarter: 2004Q1

REPORT INFORMATION
  Report Type: 
  Country: None (occurrence: None)
  Receive Date: 20040210
  Receipt Date: 20040127
  Transmission Date: 20041129
  Serious: Yes (Hospitalization)
  Sender: FDA-Public Use
  Company Number: A0426253A

PATIENT
  Age: 47 Year
  Sex: Female

DRUGS (1)
  1. NICOTINE POLACRILEX [Suspect]
     Indication: EX-SMOKER
     Dosage: 4 MG/ WICE PER DAY/ TRANSDERMAL
     Route: 062
     Dates: start: 20030501, end: 20030601

REACTIONS (11)
  - ABDOMINAL DISTENSION [None]
  - APHONIA [None]
  - APNOEA [None]
  - DYSPHAGIA [None]
  - GASTROOESOPHAGEAL REFLUX DISEASE [None]
  - LARYNGEAL OEDEMA [None]
  - LARYNGITIS [None]
  - PHARYNGEAL ERYTHEMA [None]
  - POST PROCEDURAL COMPLICATION [None]
  - POST PROCEDURAL HAEMORRHAGE [None]
  - SMOKER [None]
